FAERS Safety Report 5368656-7 (Version None)
Quarter: 2007Q2

REPORT INFORMATION
  Report Type: 
  Country: None (occurrence: None)
  Receive Date: 20070625
  Receipt Date: 20070426
  Transmission Date: 20071010
  Serious: Yes (Hospitalization, Other)
  Sender: FDA-Public Use
  Company Number: US-PURDUE-USA_2007_0027662

PATIENT
  Sex: Male

DRUGS (2)
  1. OXYCONTIN [Suspect]
     Indication: PAIN
     Dosage: 40 MG, SEE TEXT
     Route: 042
     Dates: start: 20001002, end: 20020317
  2. LORCET-HD [Concomitant]
     Indication: BREAKTHROUGH PAIN
     Dosage: 10 MG, UNK

REACTIONS (7)
  - DEPRESSION [None]
  - DRUG ABUSER [None]
  - DRUG DEPENDENCE [None]
  - EUPHORIC MOOD [None]
  - HEPATITIS C [None]
  - HEPATOCELLULAR DAMAGE [None]
  - SUICIDAL IDEATION [None]
